FAERS Safety Report 13770625 (Version 1)
Quarter: 2017Q3

REPORT INFORMATION
  Report Type: Spontaneous
  Country: CH (occurrence: CH)
  Receive Date: 20170719
  Receipt Date: 20170719
  Transmission Date: 20171127
  Serious: Yes (Hospitalization)
  Sender: FDA-Public Use
  Company Number: CH-BAYER-2017-132985

PATIENT
  Age: 85 Year
  Sex: Male

DRUGS (10)
  1. PANTOPRAZOLE SODIUM. [Concomitant]
     Active Substance: PANTOPRAZOLE SODIUM
     Dosage: 40 MG, QD
  2. MARCOUMAR [Suspect]
     Active Substance: PHENPROCOUMON
  3. BILOL [Concomitant]
     Active Substance: BISOPROLOL
     Dosage: 2.5 MG, QD
  4. IRBESARTAN. [Concomitant]
     Active Substance: IRBESARTAN
     Dosage: 300 MG, QD
  5. TEBOKAN [Suspect]
     Active Substance: GINKGO
  6. TAMSULOSIN [Concomitant]
     Active Substance: TAMSULOSIN
     Dosage: .4 MG, QD
  7. ASPIRIN CARDIO 100 MG [Suspect]
     Active Substance: ASPIRIN
     Dosage: 100 MG, QD
  8. AMLODIPIN [Concomitant]
     Active Substance: AMLODIPINE BESYLATE
     Dosage: 5 MG, QD
  9. SIMCORA [Concomitant]
     Active Substance: SIMVASTATIN
     Dosage: 40 MG, QD
  10. PARAGAR [GELID AMAN EXT,GELID CARTIL EXT,GRAC CONFERV EXT,PARAFF, [Concomitant]

REACTIONS (9)
  - Headache [Unknown]
  - Nausea [Recovered/Resolved]
  - Subarachnoid haemorrhage [Recovering/Resolving]
  - Epilepsy [Unknown]
  - Vomiting [Recovered/Resolved]
  - Brain midline shift [Recovering/Resolving]
  - Intraventricular haemorrhage [Recovering/Resolving]
  - Subdural haematoma [Recovering/Resolving]
  - Aphasia [Unknown]

NARRATIVE: CASE EVENT DATE: 20170308
